FAERS Safety Report 10911279 (Version 2)
Quarter: 2015Q2

REPORT INFORMATION
  Report Type: Spontaneous
  Country: JP (occurrence: JP)
  Receive Date: 20150312
  Receipt Date: 20150409
  Transmission Date: 20150821
  Serious: Yes (Death, Hospitalization)
  Sender: FDA-Public Use
  Company Number: PHJP2015JP002683

PATIENT
  Age: 81 Year
  Sex: Male
  Weight: 40 kg

DRUGS (1)
  1. GLIVEC [Suspect]
     Active Substance: IMATINIB MESYLATE
     Indication: GASTROINTESTINAL STROMAL TUMOUR
     Dosage: 30 MG, QD
     Route: 048
     Dates: start: 20140809, end: 20140811

REACTIONS (3)
  - Gastrointestinal stromal tumour [Fatal]
  - Malignant neoplasm progression [Fatal]
  - Asthenia [Fatal]

NARRATIVE: CASE EVENT DATE: 20140811
